FAERS Safety Report 24267259 (Version 1)
Quarter: 2024Q3

REPORT INFORMATION
  Report Type: Spontaneous
  Country: GB (occurrence: GB)
  Receive Date: 20240830
  Receipt Date: 20240830
  Transmission Date: 20241016
  Serious: Yes (Other)
  Sender: RANBAXY
  Company Number: GB-MHRA-TPP21929512C6827883YC1723650273416

PATIENT
  Age: 81 Year
  Sex: Female
  Weight: 65 kg

DRUGS (9)
  1. ATORVASTATIN [Suspect]
     Active Substance: ATORVASTATIN
     Indication: Ill-defined disorder
     Dosage: 20 MILLIGRAM, DAILY
     Route: 065
     Dates: start: 20240424
  2. CODEINE [Concomitant]
     Active Substance: CODEINE
     Indication: Ill-defined disorder
     Dosage: TAKE ONE TABLET UP TO FOUR TIMES DAILY WHEN NEEDED LEAVING AT LEAST 4 HOURS BETWEEN DOSES
     Route: 065
     Dates: start: 20240726, end: 20240809
  3. ADCAL [Concomitant]
     Indication: Ill-defined disorder
     Dosage: TAKE ONE TABLET TWICE DAILY
     Route: 065
     Dates: start: 20240424
  4. CLINITAS CARBOMER [Concomitant]
     Indication: Ill-defined disorder
     Dosage: INSTIL ONE DROP INTO THE RIGHT EYE WHEN NEEDED
     Route: 065
     Dates: start: 20240424
  5. LANSOPRAZOLE [Concomitant]
     Active Substance: LANSOPRAZOLE
     Indication: Ill-defined disorder
     Dosage: TAKE ONE CAPSULE EACH MORNING TO PROTECT STOMAC...
     Route: 065
     Dates: start: 20240424
  6. MEBEVERINE [Concomitant]
     Active Substance: MEBEVERINE
     Indication: Ill-defined disorder
     Dosage: TAKE ONE TABLET THREE TIMES DAILY
     Route: 065
     Dates: start: 20240424
  7. PREDNISOLONE [Concomitant]
     Active Substance: PREDNISOLONE
     Indication: Ill-defined disorder
     Dosage: TAKE FOUR TABLETS (20MG) EACH MORNING
     Route: 065
     Dates: start: 20240424
  8. PYRIDOSTIGMINE [Concomitant]
     Active Substance: PYRIDOSTIGMINE
     Indication: Ill-defined disorder
     Dosage: TAKE ONE TABLET (60MG) THREE TIMES DAILY (7AM, ...
     Route: 065
     Dates: start: 20240424
  9. ALENDRONIC ACID [Concomitant]
     Active Substance: ALENDRONIC ACID
     Indication: Ill-defined disorder
     Dosage: TAKE ONE TABLET ONCE WEEKLY WITH A FULL GLASS O...
     Route: 065
     Dates: start: 20240814

REACTIONS (1)
  - Myasthenia gravis [Recovering/Resolving]
